FAERS Safety Report 10925111 (Version 1)
Quarter: 2015Q1

REPORT INFORMATION
  Report Type: Spontaneous
  Country: US (occurrence: None)
  Receive Date: 20150129
  Receipt Date: 20150129
  Transmission Date: 20150721
  Serious: Yes (Hospitalization)
  Sender: FDA-Public Use
  Company Number: 2014013154

PATIENT
  Age: 19 Year
  Sex: Female

DRUGS (3)
  1. KEPPRA [Suspect]
     Active Substance: LEVETIRACETAM
     Indication: SEIZURE
     Dates: start: 201406
  2. TOPAMAX [Concomitant]
     Active Substance: TOPIRAMATE
  3. VIMPAT [Suspect]
     Active Substance: LACOSAMIDE
     Indication: SEIZURE
     Dosage: 50MG IN THE MORNING AND 100MG IN THE EVENING
     Dates: start: 201409, end: 2014

REACTIONS (3)
  - Off label use [None]
  - Seizure [None]
  - Overdose [None]

NARRATIVE: CASE EVENT DATE: 201406
